FAERS Safety Report 9519508 (Version 2)
Quarter: 2013Q3

REPORT INFORMATION
  Report Type: Report from Study
  Country: CA (occurrence: CA)
  Receive Date: 20130912
  Receipt Date: 20130912
  Transmission Date: 20140515
  Serious: Yes (Other)
  Sender: FDA-Public Use
  Company Number: CA-ABBOTT-13P-028-1141137-00

PATIENT
  Age: 65 Year
  Sex: Female
  Weight: 88.08 kg

DRUGS (1)
  1. HUMIRA [Suspect]
     Indication: RHEUMATOID ARTHRITIS
     Route: 058
     Dates: start: 20100621, end: 201210

REACTIONS (8)
  - Spinal operation [Unknown]
  - Spinal cord neoplasm [Unknown]
  - Respiratory disorder [Unknown]
  - Spinal osteoarthritis [Unknown]
  - Upper limb fracture [Recovering/Resolving]
  - Oxygen supplementation [Unknown]
  - Surgery [Unknown]
  - Cerebral disorder [Unknown]
